FAERS Safety Report 18968288 (Version 1)
Quarter: 2021Q1

REPORT INFORMATION
  Report Type: Spontaneous
  Country: US (occurrence: US)
  Receive Date: 20210303
  Receipt Date: 20210303
  Transmission Date: 20210420
  Serious: Yes (Death)
  Sender: FDA-Public Use
  Company Number: None

PATIENT
  Age: 77 Year
  Sex: Female
  Weight: 82.1 kg

DRUGS (2)
  1. REMDESIVIR 100MG [Suspect]
     Active Substance: REMDESIVIR
     Dosage: ?          OTHER DOSE:200MGX1, 100 MG;OTHER ROUTE:IVPB?
     Dates: start: 20201211, end: 20201215
  2. ZITHROMAX [Suspect]
     Active Substance: AZITHROMYCIN DIHYDRATE
     Indication: COVID-19
     Dosage: ?          OTHER ROUTE:IVPB?
     Dates: start: 20201207, end: 20201215

REACTIONS (1)
  - Death [None]

NARRATIVE: CASE EVENT DATE: 20201218
